FAERS Safety Report 8354470-7 (Version None)
Quarter: 2012Q2

REPORT INFORMATION
  Report Type: 
  Country: None (occurrence: None)
  Receive Date: 20120511
  Receipt Date: 20120501
  Transmission Date: 20120825
  Serious: Yes (Other)
  Sender: FDA-Public Use
  Company Number: US-JNJFOC-20120503403

PATIENT
  Sex: Female
  Weight: 31.75 kg

DRUGS (2)
  1. STEROIDS NOS [Suspect]
     Indication: PRODUCT USED FOR UNKNOWN INDICATION
     Route: 065
     Dates: start: 20110101
  2. REMICADE [Suspect]
     Indication: CROHN'S DISEASE
     Route: 042
     Dates: end: 20111001

REACTIONS (5)
  - FAECAL INCONTINENCE [None]
  - DIZZINESS [None]
  - FEELING ABNORMAL [None]
  - MEMORY IMPAIRMENT [None]
  - WEIGHT INCREASED [None]
